FAERS Safety Report 5214646-4 (Version None)
Quarter: 2007Q1

REPORT INFORMATION
  Report Type: 
  Country: None (occurrence: None)
  Receive Date: 20070122
  Receipt Date: 20070109
  Transmission Date: 20070707
  Serious: Yes (Hospitalization)
  Sender: FDA-Public Use
  Company Number: US-BRISTOL-MYERS SQUIBB COMPANY-13636089

PATIENT
  Age: 80 Year
  Sex: Female

DRUGS (8)
  1. COUMADIN [Suspect]
     Indication: ANTICOAGULANT THERAPY
  2. COREG [Concomitant]
  3. CLOPIDOGREL BISULFATE [Concomitant]
  4. LOVASTATIN [Concomitant]
  5. TRIAMTERENE [Concomitant]
  6. NORVASC [Concomitant]
  7. LEVOXYL [Concomitant]
  8. ACTONEL [Concomitant]

REACTIONS (6)
  - ASTHENIA [None]
  - CONTUSION [None]
  - DIABETES MELLITUS [None]
  - GINGIVAL BLEEDING [None]
  - INTERNATIONAL NORMALISED RATIO INCREASED [None]
  - SILENT MYOCARDIAL INFARCTION [None]
